FAERS Safety Report 4889882-7 (Version None)
Quarter: 2006Q1

REPORT INFORMATION
  Report Type: 
  Country: None (occurrence: None)
  Receive Date: 20060124
  Receipt Date: 20051005
  Transmission Date: 20060701
  Serious: Yes (Hospitalization, Other)
  Sender: FDA-Public Use
  Company Number: US-MERCK-0510USA04402

PATIENT
  Age: 85 Year
  Sex: Female
  Weight: 77 kg

DRUGS (5)
  1. VIOXX [Suspect]
     Indication: ARTHRITIS
     Route: 048
     Dates: start: 20001201, end: 20040901
  2. ATENOLOL [Concomitant]
     Route: 065
  3. HYDROCHLOROTHIAZIDE AND TRIAMTERENE [Concomitant]
     Route: 065
  4. GLIPIZIDE [Concomitant]
     Route: 065
  5. DICLOFENAC [Concomitant]
     Route: 065

REACTIONS (12)
  - ARTHROPATHY [None]
  - ASTHENIA [None]
  - CEREBROVASCULAR ACCIDENT [None]
  - CONSTIPATION [None]
  - DEHYDRATION [None]
  - DEPRESSION [None]
  - FAECALOMA [None]
  - NAUSEA [None]
  - ORAL INTAKE REDUCED [None]
  - RENAL FAILURE [None]
  - URINARY TRACT INFECTION [None]
  - VOMITING [None]
